FAERS Safety Report 21650384 (Version 3)
Quarter: 2023Q1

REPORT INFORMATION
  Report Type: Spontaneous
  Country: JP (occurrence: JP)
  Receive Date: 20221128
  Receipt Date: 20230330
  Transmission Date: 20230418
  Serious: Yes (Life-Threatening, Hospitalization, Other)
  Sender: FDA-Public Use
  Company Number: JP-OTSUKA-2022_052992

PATIENT
  Age: 66 Year
  Sex: Female
  Weight: 40.5 kg

DRUGS (33)
  1. ABILIFY [Suspect]
     Active Substance: ARIPIPRAZOLE
     Indication: Schizophrenia
     Dosage: 1 TABLET/TIME, 2 TIMES/DAY, 2 TABLETS/DAY
     Route: 048
     Dates: start: 20221006, end: 20221015
  2. ABILIFY [Suspect]
     Active Substance: ARIPIPRAZOLE
     Dosage: 2 TABLETS/TIME, 1 TIME/DAY, 2 TABLETS/DAY
     Route: 048
     Dates: start: 20220713, end: 20220726
  3. ABILIFY [Suspect]
     Active Substance: ARIPIPRAZOLE
     Dosage: 1 TABLET/TIME, 1 TIME/DAY, 1 TABLET/DAY
     Route: 048
     Dates: start: 20220810, end: 20220823
  4. ABILIFY [Suspect]
     Active Substance: ARIPIPRAZOLE
     Indication: Schizophrenia
     Dosage: 1 TABLET/TIME, 2 TIMES/DAY, 2 TABLETS/DAY
     Route: 048
     Dates: start: 20221007, end: 20221015
  5. PEROSPIRONE HYDROCHLORIDE [Suspect]
     Active Substance: PEROSPIRONE HYDROCHLORIDE
     Indication: Schizophrenia
     Dosage: AS-NEEDED USE, 1 TABLET/TIME, 5DOSES, 10P
     Route: 048
     Dates: start: 20221013, end: 20221013
  6. PEROSPIRONE HYDROCHLORIDE [Suspect]
     Active Substance: PEROSPIRONE HYDROCHLORIDE
     Dosage: 1 TABLET/TIME, 3 TIMES/DAY, 3 TABLETS/DAY
     Route: 048
     Dates: start: 20220720, end: 20220726
  7. PEROSPIRONE HYDROCHLORIDE [Suspect]
     Active Substance: PEROSPIRONE HYDROCHLORIDE
     Dosage: AS-NEEDED USE, 1 TABLET/TIME, 5DOSES, 5P
     Route: 048
     Dates: start: 20220928, end: 20220928
  8. BLONANSERIN [Concomitant]
     Active Substance: BLONANSERIN
     Indication: Schizophrenia
     Dosage: 1 TABLET/TIME, 3 TIMES/DAY, 3 TABLETS/DAY
     Route: 048
     Dates: start: 20220701, end: 20220710
  9. BLONANSERIN [Concomitant]
     Active Substance: BLONANSERIN
     Dosage: 1 TABLET/TIME, 2 TIMES/DAY, 2 TABLETS/DAY
     Route: 048
     Dates: start: 20220726, end: 20220816
  10. BLONANSERIN [Concomitant]
     Active Substance: BLONANSERIN
     Dosage: 1 TABLET/TIME, 2 TIMES/DAY, 2 TABLETS/DAY
     Route: 048
     Dates: start: 20220823, end: 20220906
  11. BLONANSERIN [Concomitant]
     Active Substance: BLONANSERIN
     Dosage: 1 TABLET/TIME, 2 TIMES/DAY, 2 TABLETS/DAY
     Route: 048
     Dates: start: 20220928, end: 20221005
  12. AKINETON [Concomitant]
     Active Substance: BIPERIDEN HYDROCHLORIDE
     Indication: Dystonia
     Dosage: 1 TABLET/TIME, 3 TIMES/DAY, 3 TABLETS/DAY
     Route: 048
     Dates: start: 20220701, end: 20220705
  13. AKINETON [Concomitant]
     Active Substance: BIPERIDEN HYDROCHLORIDE
     Indication: Dyskinesia
     Dosage: 1 TABLET/TIME, 3 TIMES/DAY, 3 TABLETS/DAY
     Route: 048
     Dates: start: 20220713, end: 20220726
  14. AKINETON [Concomitant]
     Active Substance: BIPERIDEN HYDROCHLORIDE
     Dosage: 1 TABLET/TIME, 2 TIMES/DAY, 2 TABLETS/DAY
     Route: 048
     Dates: start: 20221006, end: 20221015
  15. AKINETON [Concomitant]
     Active Substance: BIPERIDEN HYDROCHLORIDE
     Dosage: AS-NEEDED USE, 1 TABLET/TIME, 5DOSES, 5P
     Route: 048
     Dates: start: 20221011, end: 20221011
  16. LORAZEPAM [Concomitant]
     Active Substance: LORAZEPAM
     Indication: Anxiety
     Dosage: 1 TABLET/TIME, 1 TIME/DAY, 1 TABLET/DAY
     Route: 048
     Dates: start: 20220706, end: 20220719
  17. LORAZEPAM [Concomitant]
     Active Substance: LORAZEPAM
     Indication: Irritability
     Dosage: 2 TABLETS/TIME, 1 TIME/DAY, 2 TABLETS/DAY
     Route: 048
     Dates: start: 20220713, end: 20220906
  18. LORAZEPAM [Concomitant]
     Active Substance: LORAZEPAM
     Dosage: AS-NEEDED USE, 1 TABLET/TIME, 3 DOSES, 3P
     Route: 048
     Dates: start: 20220928, end: 20220928
  19. LORAZEPAM [Concomitant]
     Active Substance: LORAZEPAM
     Dosage: AS-NEEDED USE, 1 TABLET/TIME, 3 DOSES, 5P
     Route: 048
     Dates: start: 20220930, end: 20220930
  20. LORAZEPAM [Concomitant]
     Active Substance: LORAZEPAM
     Dosage: AS-NEEDED USE, 1 TABLET/TIME, 3 DOSES, 10P
     Route: 048
     Dates: start: 20221001, end: 20221001
  21. LORAZEPAM [Concomitant]
     Active Substance: LORAZEPAM
     Dosage: AS-NEEDED USE, 1 TABLET/TIME, 3 DOSES, 10P
     Route: 048
     Dates: start: 20221006, end: 20221006
  22. LORAZEPAM [Concomitant]
     Active Substance: LORAZEPAM
     Dosage: AS-NEEDED USE, 1 TABLET/TIME, 3 DOSES, 10P
     Route: 048
     Dates: start: 20221014, end: 20221014
  23. RIVOTRIL [Concomitant]
     Active Substance: CLONAZEPAM
     Indication: Anxiety
     Dosage: 1 TABLET/TIME, 2 TIMES/DAY, 2 TABLETS/DAY
     Route: 048
     Dates: start: 20220701, end: 20220705
  24. RIVOTRIL [Concomitant]
     Active Substance: CLONAZEPAM
     Indication: Irritability
     Dosage: 1 TABLET/TIME, 3 TIMES/DAY, 3 TABLETS/DAY
     Route: 048
     Dates: start: 20220713, end: 20220816
  25. RIVOTRIL [Concomitant]
     Active Substance: CLONAZEPAM
     Dosage: 1 TABLET/TIME, 3 TIMES/DAY, 3 TABLETS/DAY
     Route: 048
     Dates: start: 20220823, end: 20220906
  26. RIVOTRIL [Concomitant]
     Active Substance: CLONAZEPAM
     Dosage: 1 TABLET/TIME, 3 TIMES/DAY, 3 TABLETS/DAY
     Route: 048
     Dates: start: 20220928, end: 20221005
  27. RIVOTRIL [Concomitant]
     Active Substance: CLONAZEPAM
     Dosage: AS-NEEDED USE, 1 TABLET/TIME, 5 DOSES, 5P
     Route: 048
     Dates: start: 20220928, end: 20220928
  28. RIVOTRIL [Concomitant]
     Active Substance: CLONAZEPAM
     Dosage: AS-NEEDED USE, 1 TABLET/TIME, 5 DOSES, 10P
     Route: 048
     Dates: start: 20221009, end: 20221009
  29. RIVOTRIL [Concomitant]
     Active Substance: CLONAZEPAM
     Dosage: AS-NEEDED USE, 1 TABLET/TIME, 5 DOSES, 10P
     Route: 048
     Dates: start: 20221015, end: 20221015
  30. DAYVIGO [Concomitant]
     Active Substance: LEMBOREXANT
     Indication: Insomnia
     Dosage: AS-NEEDED USE, 1 TABLET/TIME, 3 DOSES, 3P
     Route: 065
     Dates: start: 20220928, end: 20220928
  31. DAYVIGO [Concomitant]
     Active Substance: LEMBOREXANT
     Dosage: AS-NEEDED USE, 1 TABLET/TIME, 3 DOSES, 10P
     Route: 065
     Dates: start: 20221014, end: 20221014
  32. GLYCOSAMINOGLYCANS [Concomitant]
     Active Substance: GLYCOSAMINOGLYCANS
     Indication: Asteatosis
     Dosage: EXTERNAL USE, FULL DOSE/TIME, 5 BOTTLE/DAY
     Route: 065
     Dates: start: 20221012
  33. LOXOPROFEN SODIUM [Concomitant]
     Active Substance: LOXOPROFEN SODIUM
     Indication: Back pain
     Dosage: EXTERNAL USE, FULL DOSE/TIME, 1 BAG/DAY, 7 SHEETS
     Route: 065
     Dates: start: 20221013, end: 20221013

REACTIONS (11)
  - Inappropriate antidiuretic hormone secretion [Recovered/Resolved]
  - Cardiomegaly [Unknown]
  - Left ventricular dysfunction [Unknown]
  - Ventricular hypokinesia [Unknown]
  - Morphoea [Unknown]
  - Respiratory failure [Unknown]
  - Cerebrovascular accident [Unknown]
  - Deep vein thrombosis [Unknown]
  - Calculus bladder [Unknown]
  - Neutrophil count increased [Unknown]
  - Decreased appetite [Unknown]

NARRATIVE: CASE EVENT DATE: 20221016
